FAERS Safety Report 11358918 (Version 1)
Quarter: 2015Q3

REPORT INFORMATION
  Report Type: Spontaneous
  Country: US (occurrence: None)
  Receive Date: 20150807
  Receipt Date: 20150807
  Transmission Date: 20151125
  Serious: Yes (Disabling, Other)
  Sender: FDA-Public Use
  Company Number: None

PATIENT
  Age: 49 Year
  Sex: Female
  Weight: 90.72 kg

DRUGS (5)
  1. ARIPIPRAZOLE 5MG [Suspect]
     Active Substance: ARIPIPRAZOLE
     Indication: DEPRESSION
     Dosage: 1/2 TABLET
     Route: 048
     Dates: start: 20150804, end: 20150806
  2. ARIPIPRAZOLE 5MG [Suspect]
     Active Substance: ARIPIPRAZOLE
     Indication: POST-TRAUMATIC STRESS DISORDER
     Dosage: 1/2 TABLET
     Route: 048
     Dates: start: 20150804, end: 20150806
  3. ARIPIPRAZOLE 5MG [Suspect]
     Active Substance: ARIPIPRAZOLE
     Indication: ANXIETY
     Dosage: 1/2 TABLET
     Route: 048
     Dates: start: 20150804, end: 20150806
  4. ARIPIPRAZOLE 5MG [Suspect]
     Active Substance: ARIPIPRAZOLE
     Indication: INSOMNIA
     Dosage: 1/2 TABLET
     Route: 048
     Dates: start: 20150804, end: 20150806
  5. ARIPIPRAZOLE 5MG [Suspect]
     Active Substance: ARIPIPRAZOLE
     Indication: PANIC REACTION
     Dosage: 1/2 TABLET
     Route: 048
     Dates: start: 20150804, end: 20150806

REACTIONS (5)
  - Dysphagia [None]
  - Rash [None]
  - Diarrhoea [None]
  - Nausea [None]
  - Malaise [None]

NARRATIVE: CASE EVENT DATE: 20150804
